FAERS Safety Report 8384658-0 (Version None)
Quarter: 2012Q2

REPORT INFORMATION
  Report Type: 
  Country: None (occurrence: None)
  Receive Date: 20120524
  Receipt Date: 20120524
  Transmission Date: 20120825
  Serious: Yes (Hospitalization)
  Sender: FDA-Public Use
  Company Number: FR-EISAI INC-E2090-02132-SPO-FR

PATIENT
  Sex: Male

DRUGS (3)
  1. LAMICTAL [Concomitant]
     Indication: EPILEPSY
     Dosage: UNKNOWN
     Route: 048
  2. ZONEGRAN [Suspect]
     Indication: EPILEPSY
     Dosage: 250 MG
     Route: 048
     Dates: start: 20100101
  3. KEPPRA [Concomitant]
     Indication: EPILEPSY
     Dosage: UNKNOWN
     Route: 048

REACTIONS (1)
  - NEPHROLITHIASIS [None]
